FAERS Safety Report 18762747 (Version 1)
Quarter: 2021Q1

REPORT INFORMATION
  Report Type: Spontaneous
  Country: US (occurrence: US)
  Receive Date: 20210120
  Receipt Date: 20210120
  Transmission Date: 20210419
  Serious: Yes (Other)
  Sender: FDA-Public Use
  Company Number: US-LUPIN PHARMACEUTICALS INC.-2021-00330

PATIENT
  Age: 57 Year
  Sex: Female

DRUGS (13)
  1. HYDROXYCHLOROQUINE [Suspect]
     Active Substance: HYDROXYCHLOROQUINE
     Dosage: 200 MILLIGRAM, BID
     Route: 048
  2. LOPINAVIR/RITONAVIR [Suspect]
     Active Substance: LOPINAVIR\RITONAVIR
     Indication: COVID-19
     Dosage: UNK, BID, 400/ 100 MG
     Route: 048
  3. EPINEPHRINE. [Concomitant]
     Active Substance: EPINEPHRINE
     Indication: HYPOTENSION
     Dosage: 8 MICROGRAM, PER MINUTE
     Route: 065
  4. AZITHROMYCIN ANHYDROUS. [Concomitant]
     Active Substance: AZITHROMYCIN ANHYDROUS
     Indication: ANTIBIOTIC THERAPY
     Dosage: 500 MILLIGRAM, QD
     Route: 042
  5. HYDROXYCHLOROQUINE [Suspect]
     Active Substance: HYDROXYCHLOROQUINE
     Indication: COVID-19
     Dosage: 400 MILLIGRAM, BID, 2 DOSES
     Route: 048
  6. METRONIDAZOLE. [Concomitant]
     Active Substance: METRONIDAZOLE
     Indication: ANTIBIOTIC THERAPY
     Dosage: 500 MILLIGRAM, TID
     Route: 042
  7. CEFTRIAXONE. [Concomitant]
     Active Substance: CEFTRIAXONE
     Indication: PNEUMONIA
     Dosage: 2 GRAM, QD
     Route: 042
  8. DOBUTAMINE [Concomitant]
     Active Substance: DOBUTAMINE HYDROCHLORIDE
     Indication: CARDIOGENIC SHOCK
     Dosage: 5 MICROGRAM/KILOGRAM, PER MINUTE
     Route: 065
  9. NOREPINEPHRINE. [Concomitant]
     Active Substance: NOREPINEPHRINE
     Indication: HYPOTENSION
     Dosage: 30 MICROGRAM, PER MINUTE
     Route: 065
  10. TOCILIZUMAB. [Suspect]
     Active Substance: TOCILIZUMAB
     Indication: COVID-19
     Dosage: 800 MILLIGRAM
     Route: 042
  11. VANCOMYCIN [Concomitant]
     Active Substance: VANCOMYCIN
     Indication: ANTIBIOTIC THERAPY
     Dosage: 25 MILLIGRAM/KILOGRAM
     Route: 042
  12. USTEKINUMAB [Concomitant]
     Active Substance: USTEKINUMAB
     Indication: CROHN^S DISEASE
     Dosage: UNK
     Route: 065
  13. CEFEPIME [Concomitant]
     Active Substance: CEFEPIME HYDROCHLORIDE
     Indication: ANTIBIOTIC THERAPY
     Dosage: 1 GRAM, BID
     Route: 042

REACTIONS (1)
  - Off label use [Unknown]
